FAERS Safety Report 9787689 (Version 3)
Quarter: 2014Q1

REPORT INFORMATION
  Report Type: Spontaneous
  Country: DE (occurrence: DE)
  Receive Date: 20131230
  Receipt Date: 20140120
  Transmission Date: 20141002
  Serious: Yes (Death, Hospitalization, Other)
  Sender: FDA-Public Use
  Company Number: DE-JNJFOC-20131214799

PATIENT
  Age: 87 Year
  Sex: Female

DRUGS (3)
  1. XARELTO [Suspect]
     Indication: CARDIAC FAILURE
     Route: 048
     Dates: start: 20130808
  2. XARELTO [Suspect]
     Indication: CEREBROVASCULAR ACCIDENT PROPHYLAXIS
     Route: 048
     Dates: start: 20130808
  3. XARELTO [Suspect]
     Indication: ATRIAL FIBRILLATION
     Route: 048
     Dates: start: 20130808

REACTIONS (7)
  - Organ failure [Fatal]
  - Renal failure [Fatal]
  - Renal impairment [Fatal]
  - Pemphigoid [Unknown]
  - Syncope [Unknown]
  - Haemoglobin decreased [Unknown]
  - Pneumonia [Unknown]
